FAERS Safety Report 11937304 (Version 6)
Quarter: 2016Q3

REPORT INFORMATION
  Report Type: Report from Study
  Country: US (occurrence: US)
  Receive Date: 20160121
  Receipt Date: 20160728
  Transmission Date: 20161109
  Serious: Yes (Hospitalization)
  Sender: FDA-Public Use
  Company Number: US-ACTELION-A-NJ2016-130099

PATIENT
  Age: 73 Year
  Sex: Male

DRUGS (3)
  1. RIOCIGUAT [Concomitant]
     Active Substance: RIOCIGUAT
     Dosage: 2.5 MG, UNK
  2. OPSUMIT [Suspect]
     Active Substance: MACITENTAN
     Indication: PULMONARY ARTERIAL HYPERTENSION
     Dosage: 10 MG, QD
     Route: 048
     Dates: start: 20141015
  3. RIOCIGUAT [Concomitant]
     Active Substance: RIOCIGUAT
     Dosage: 2 MG, UNK

REACTIONS (17)
  - Diverticulum [Unknown]
  - Diverticulitis [Unknown]
  - Nausea [Unknown]
  - Vomiting [Unknown]
  - Abdominal distension [Unknown]
  - Abdominal discomfort [Unknown]
  - Diarrhoea [Unknown]
  - Muscular weakness [Unknown]
  - Pneumonia [Unknown]
  - Flatulence [Unknown]
  - Abdominal pain upper [Unknown]
  - Pain [Unknown]
  - Dysgeusia [Unknown]
  - Constipation [Unknown]
  - Back pain [Unknown]
  - Pain in extremity [Unknown]
  - Neuralgia [Unknown]
